FAERS Safety Report 21061657 (Version 1)
Quarter: 2022Q3

REPORT INFORMATION
  Report Type: Spontaneous
  Country: US (occurrence: US)
  Receive Date: 20220709
  Receipt Date: 20220709
  Transmission Date: 20221026
  Serious: Yes (Hospitalization)
  Sender: FDA-Public Use
  Company Number: US-GBT-013878

PATIENT
  Sex: Female

DRUGS (1)
  1. OXBRYTA [Suspect]
     Active Substance: VOXELOTOR
     Indication: Sickle cell disease
     Route: 048
     Dates: start: 202203

REACTIONS (4)
  - Sickle cell anaemia with crisis [Recovering/Resolving]
  - Skin reaction [Unknown]
  - Product dose omission issue [Unknown]
  - Therapy cessation [Unknown]
